FAERS Safety Report 21203478 (Version 1)
Quarter: 2022Q3

REPORT INFORMATION
  Report Type: Report from Study
  Country: DK (occurrence: DK)
  Receive Date: 20220811
  Receipt Date: 20220811
  Transmission Date: 20221027
  Serious: Yes (Death, Life-Threatening, Hospitalization, Disabling, Other)
  Sender: FDA-Public Use
  Company Number: None

PATIENT
  Age: 5 Year
  Sex: Male
  Weight: 18 kg

DRUGS (43)
  1. PIPERACILLIN SODIUM\TAZOBACTAM SODIUM [Suspect]
     Active Substance: PIPERACILLIN SODIUM\TAZOBACTAM SODIUM
     Indication: Vomiting
     Dosage: UNK
     Route: 065
  2. PIPERACILLIN SODIUM\TAZOBACTAM SODIUM [Suspect]
     Active Substance: PIPERACILLIN SODIUM\TAZOBACTAM SODIUM
     Indication: Respiratory arrest
  3. MEROPENEM [Suspect]
     Active Substance: MEROPENEM
     Indication: Antibiotic therapy
     Dosage: UNK
     Route: 065
  4. MEROPENEM [Suspect]
     Active Substance: MEROPENEM
     Indication: Antibiotic therapy
  5. PROPOFOL [Suspect]
     Active Substance: PROPOFOL
     Dosage: UNK
     Route: 065
  6. CIPROFLOXACIN [Suspect]
     Active Substance: CIPROFLOXACIN
     Dosage: UNK
     Route: 065
  7. FENTANYL [Suspect]
     Active Substance: FENTANYL
     Indication: Interstitial lung disease
     Dosage: UNK
     Route: 042
  8. FENTANYL [Suspect]
     Active Substance: FENTANYL
     Indication: Pneumonia
  9. FENTANYL [Suspect]
     Active Substance: FENTANYL
     Indication: Pneumococcal infection
  10. FENTANYL [Suspect]
     Active Substance: FENTANYL
     Indication: Intestinal ischaemia
  11. FENTANYL [Suspect]
     Active Substance: FENTANYL
     Indication: Brain injury
  12. FENTANYL [Suspect]
     Active Substance: FENTANYL
     Indication: Circulatory collapse
  13. FENTANYL [Suspect]
     Active Substance: FENTANYL
     Indication: Respiratory tract infection
  14. FENTANYL [Suspect]
     Active Substance: FENTANYL
     Indication: Cerebral ischaemia
  15. FENTANYL [Suspect]
     Active Substance: FENTANYL
     Indication: Interstitial lung disease
  16. PENICILLIN G [Suspect]
     Active Substance: PENICILLIN G
     Indication: Mumps immunisation
     Dosage: UNK
     Route: 065
  17. M-M-RVAXPRO [Suspect]
     Active Substance: MEASLES VIRUS STRAIN ENDERS^ ATTENUATED EDMONSTON LIVE ANTIGEN\MUMPS VIRUS STRAIN B LEVEL JERYL LYNN
     Indication: Immunisation
     Dosage: UNK
     Route: 065
     Dates: start: 20170918, end: 20170918
  18. M-M-RVAXPRO [Suspect]
     Active Substance: MEASLES VIRUS STRAIN ENDERS^ ATTENUATED EDMONSTON LIVE ANTIGEN\MUMPS VIRUS STRAIN B LEVEL JERYL LYNN
     Indication: Pneumococcal sepsis
  19. MUMPS VIRUS VACCINE LIVE NOS [Suspect]
     Active Substance: MUMPS VIRUS STRAIN B LEVEL JERYL LYNN LIVE ANTIGEN
     Indication: Immunisation
     Dosage: UNK
     Route: 065
  20. GENTAMICIN SULFATE [Suspect]
     Active Substance: GENTAMICIN SULFATE
     Indication: Antibiotic therapy
     Dosage: UNK
     Route: 042
  21. GENTAMICIN SULFATE [Suspect]
     Active Substance: GENTAMICIN SULFATE
     Indication: Antibiotic therapy
  22. GENTAMICIN SULFATE [Suspect]
     Active Substance: GENTAMICIN SULFATE
     Indication: Pneumococcal sepsis
  23. GENTAMICIN SULFATE [Suspect]
     Active Substance: GENTAMICIN SULFATE
     Indication: Measles immunisation
  24. GENTAMICIN SULFATE [Suspect]
     Active Substance: GENTAMICIN SULFATE
     Indication: Mumps immunisation
  25. GENTAMICIN SULFATE [Suspect]
     Active Substance: GENTAMICIN SULFATE
     Indication: Rubella immunisation
  26. ALBUTEROL SULFATE [Suspect]
     Active Substance: ALBUTEROL SULFATE
     Dosage: UNK
  27. DEXTROSE\POTASSIUM CHLORIDE\SODIUM CHLORIDE\SODIUM CITRATE [Suspect]
     Active Substance: DEXTROSE\POTASSIUM CHLORIDE\SODIUM CHLORIDE\SODIUM CITRATE
     Indication: Pneumonia
     Dosage: UNK
     Route: 065
  28. DEXTROSE\POTASSIUM CHLORIDE\SODIUM CHLORIDE\SODIUM CITRATE [Suspect]
     Active Substance: DEXTROSE\POTASSIUM CHLORIDE\SODIUM CHLORIDE\SODIUM CITRATE
     Indication: Pneumonia
     Dosage: UNK
  29. DEXTROSE\POTASSIUM CHLORIDE\SODIUM CHLORIDE\SODIUM CITRATE [Suspect]
     Active Substance: DEXTROSE\POTASSIUM CHLORIDE\SODIUM CHLORIDE\SODIUM CITRATE
     Dosage: UNK
  30. DEXTROSE\POTASSIUM CHLORIDE\SODIUM CHLORIDE\SODIUM CITRATE [Suspect]
     Active Substance: DEXTROSE\POTASSIUM CHLORIDE\SODIUM CHLORIDE\SODIUM CITRATE
     Dosage: UNK
     Route: 065
  31. PENICILLIN V [Suspect]
     Active Substance: PENICILLIN V
     Indication: Antibiotic therapy
     Dosage: UNK
     Route: 065
  32. PENICILLIN V [Suspect]
     Active Substance: PENICILLIN V
     Indication: Antibiotic therapy
  33. PULMOZYME [Suspect]
     Active Substance: DORNASE ALFA
     Indication: Interstitial lung disease
     Dosage: UNK
     Route: 065
  34. PULMOZYME [Suspect]
     Active Substance: DORNASE ALFA
     Indication: Interstitial lung disease
  35. CEFUROXIME [Suspect]
     Active Substance: CEFUROXIME
     Indication: Antibiotic therapy
     Dosage: UNK
     Route: 042
  36. CEFUROXIME [Suspect]
     Active Substance: CEFUROXIME
     Indication: Antibiotic therapy
  37. RUBELLA VIRUS STRAIN WISTAR RA 27/3 LIVE ANTIGEN [Suspect]
     Active Substance: RUBELLA VIRUS STRAIN WISTAR RA 27/3 LIVE ANTIGEN
     Dosage: UNK
  38. DURAGESIC [Suspect]
     Active Substance: FENTANYL
  39. CLAVULANATE POTASSIUM [Suspect]
     Active Substance: CLAVULANATE POTASSIUM
  40. DORNASE ALFA [Suspect]
     Active Substance: DORNASE ALFA
     Indication: Interstitial lung disease
     Dosage: UNK
  41. DORNASE ALFA [Suspect]
     Active Substance: DORNASE ALFA
     Indication: Interstitial lung disease
     Dosage: UNK
  42. AMOXICILLIN\CLAVULANATE POTASSIUM [Suspect]
     Active Substance: AMOXICILLIN\CLAVULANATE POTASSIUM
     Indication: Pneumonia
     Dosage: UNK
     Dates: start: 20150611, end: 20160720
  43. AMOXICILLIN\CLAVULANATE POTASSIUM [Suspect]
     Active Substance: AMOXICILLIN\CLAVULANATE POTASSIUM
     Dosage: UNK
     Dates: start: 20160714, end: 20160720

REACTIONS (69)
  - Malaise [Fatal]
  - Pyrexia [Fatal]
  - Infantile vomiting [Fatal]
  - Pneumonia [Fatal]
  - Brain injury [Fatal]
  - Respiratory arrest [Fatal]
  - Pneumonia aspiration [Fatal]
  - Pneumococcal sepsis [Fatal]
  - Muscular weakness [Fatal]
  - Dehydration [Fatal]
  - Atelectasis [Fatal]
  - Ischaemic cerebral infarction [Fatal]
  - Circulatory collapse [Fatal]
  - Intestinal ischaemia [Fatal]
  - Brain injury [Fatal]
  - Interstitial lung disease [Fatal]
  - Respiratory tract infection bacterial [Fatal]
  - Dyspnoea [Fatal]
  - Tachypnoea [Fatal]
  - Injury [Fatal]
  - Metabolic disorder [Fatal]
  - Motor dysfunction [Fatal]
  - Lung consolidation [Fatal]
  - Dysphagia [Fatal]
  - Condition aggravated [Fatal]
  - Inflammation [Fatal]
  - Spinal muscular atrophy [Fatal]
  - Disease complication [Fatal]
  - Increased bronchial secretion [Fatal]
  - Lung infiltration [Fatal]
  - Demyelination [Fatal]
  - Endotracheal intubation [Unknown]
  - Scoliosis [Fatal]
  - Bronchial disorder [Fatal]
  - Lymphadenectomy [Fatal]
  - Secretion discharge [Fatal]
  - Ascites [Fatal]
  - Increased bronchial secretion [Fatal]
  - Motor neurone disease [Fatal]
  - Stoma closure [Fatal]
  - Muscle atrophy [Fatal]
  - Pneumonia [Recovered/Resolved]
  - Lower respiratory tract infection bacterial [Fatal]
  - Brain injury [Fatal]
  - Endotracheal intubation [Unknown]
  - Pneumonia [Recovered/Resolved]
  - Chest X-ray abnormal [Fatal]
  - Sputum increased [Fatal]
  - Diarrhoea [Fatal]
  - Dyspnoea [Fatal]
  - Lower respiratory tract infection bacterial [Fatal]
  - Demyelination [Fatal]
  - Atelectasis [Fatal]
  - Secretion discharge [Fatal]
  - Ascites [Fatal]
  - Dehydration [Fatal]
  - Malaise [Fatal]
  - Pneumonia [Recovered/Resolved]
  - Dysphagia [Fatal]
  - Intestinal ischaemia [Fatal]
  - Scoliosis [Fatal]
  - Muscular weakness [Fatal]
  - Lymphadenectomy [Fatal]
  - Motor neurone disease [Fatal]
  - Vomiting [Fatal]
  - Chest X-ray abnormal [Fatal]
  - Circulatory collapse [Fatal]
  - Respiratory arrest [Fatal]
  - Lung infiltration [Fatal]

NARRATIVE: CASE EVENT DATE: 20160620
